FAERS Safety Report 8620286-7 (Version None)
Quarter: 2012Q3

REPORT INFORMATION
  Report Type: 
  Country: None (occurrence: None)
  Receive Date: 20120816
  Receipt Date: 20120816
  Transmission Date: 20120928
  Serious: Yes (Hospitalization)
  Sender: FDA-Public Use
  Company Number: None

PATIENT
  Sex: Female
  Weight: 119.8 kg

DRUGS (5)
  1. PEG-L-ASPARAGINASE (K-H) 6000 MG [Suspect]
     Dosage: 6000 MG
  2. VINCRISTINE SULFATE [Suspect]
     Dosage: 5 MG
  3. METHOTREXATE [Suspect]
     Dosage: 15 MG
  4. DAUNORUBICIN HCL [Suspect]
     Dosage: 150 MG
  5. CYTARABINE [Suspect]
     Dosage: 70 MG

REACTIONS (2)
  - BLOOD BILIRUBIN INCREASED [None]
  - ASTHENIA [None]
